FAERS Safety Report 11699451 (Version 2)
Quarter: 2015Q4

REPORT INFORMATION
  Report Type: Spontaneous
  Country: UA (occurrence: UA)
  Receive Date: 20151105
  Receipt Date: 20151119
  Transmission Date: 20160304
  Serious: Yes (Life-Threatening, Other)
  Sender: FDA-Public Use
  Company Number: UA-ASTRAZENECA-2015SF06039

PATIENT
  Age: 60 Year
  Sex: Male

DRUGS (2)
  1. BRILINTA [Suspect]
     Active Substance: TICAGRELOR
     Indication: ACUTE CORONARY SYNDROME
     Route: 048
  2. CLOPIDOGREL [Concomitant]
     Active Substance: CLOPIDOGREL BISULFATE

REACTIONS (5)
  - Haematoma [Recovered/Resolved]
  - Coronary artery thrombosis [Unknown]
  - Coronary artery restenosis [Recovered/Resolved]
  - Dyspnoea [Recovered/Resolved]
  - Myocardial infarction [Recovered/Resolved]
